FAERS Safety Report 4934096-5 (Version None)
Quarter: 2006Q1

REPORT INFORMATION
  Report Type: 
  Country: None (occurrence: None)
  Receive Date: 20060303
  Receipt Date: 20060223
  Transmission Date: 20060701
  Serious: Yes (Hospitalization, Other)
  Sender: FDA-Public Use
  Company Number: 163-20785-05110375

PATIENT
  Age: 48 Year
  Sex: Male
  Weight: 110.6777 kg

DRUGS (3)
  1. THALOMID [Suspect]
     Indication: MULTIPLE MYELOMA
     Dosage: 50 MG, QHS, ORAL
     Route: 048
     Dates: start: 20050824
  2. ISONIAZID [Concomitant]
  3. NORVASC [Concomitant]

REACTIONS (5)
  - CATHETER RELATED COMPLICATION [None]
  - DIALYSIS [None]
  - GRAFT INFECTION [None]
  - GRAFT THROMBOSIS [None]
  - RENAL FAILURE CHRONIC [None]
